FAERS Safety Report 25964017 (Version 1)
Quarter: 2025Q4

REPORT INFORMATION
  Report Type: Report from Study
  Country: US (occurrence: US)
  Receive Date: 20251027
  Receipt Date: 20251027
  Transmission Date: 20260118
  Serious: Yes (Hospitalization)
  Sender: IPSEN BIOPHARMACEUTICALS, INC.
  Company Number: US-IPSEN Group, Research and Development-2022-26361

PATIENT
  Age: 68 Year
  Sex: Male
  Weight: 70.6 kg

DRUGS (2)
  1. ONIVYDE [Suspect]
     Active Substance: IRINOTECAN HYDROCHLORIDE
     Indication: Pancreatic carcinoma
     Dosage: CYCLE 1 DAY 15
     Dates: start: 20200720
  2. RUCAPARIB [Suspect]
     Active Substance: RUCAPARIB
     Indication: Malignant mesenteric neoplasm
     Dosage: ORAL/TWICE DAILY; DAY4-13
     Route: 048
     Dates: start: 20200723

REACTIONS (11)
  - Abdominal pain [Unknown]
  - Dyspnoea exertional [Unknown]
  - Asthenia [Unknown]
  - Dysuria [Unknown]
  - Oedema peripheral [Unknown]
  - Abdominal distension [Unknown]
  - Epigastric discomfort [Unknown]
  - Ascites [Unknown]
  - Hyponatraemia [Unknown]
  - Vomiting [Unknown]
  - Disease progression [Unknown]

NARRATIVE: CASE EVENT DATE: 20200814
